FAERS Safety Report 9126685 (Version 1)
Quarter: 2013Q1

REPORT INFORMATION
  Report Type: Spontaneous
  Country: JP (occurrence: JP)
  Receive Date: 20130117
  Receipt Date: 20130117
  Transmission Date: 20140127
  Serious: Yes (Other)
  Sender: FDA-Public Use
  Company Number: JP-JHP PHARMACEUTICALS, LLC-JHP201300010

PATIENT
  Age: 30 Year
  Sex: Female

DRUGS (4)
  1. PITOCIN [Suspect]
     Indication: UTERINE ATONY
     Route: 008
  2. METHYLERGOMETRINE [Suspect]
     Indication: UTERINE ATONY
  3. PROSTAGLANDIN F2 ALPHA [Suspect]
     Indication: UTERINE ATONY
  4. ANESTHETICS [Concomitant]

REACTIONS (2)
  - Postpartum haemorrhage [Recovered/Resolved]
  - Drug ineffective [Recovered/Resolved]
